FAERS Safety Report 20346223 (Version 1)
Quarter: 2022Q1

REPORT INFORMATION
  Report Type: Spontaneous
  Country: US (occurrence: None)
  Receive Date: 20220118
  Receipt Date: 20220118
  Transmission Date: 20220423
  Serious: Yes (Other)
  Sender: FDA-Public Use
  Company Number: 2022A017124

PATIENT
  Sex: Male

DRUGS (1)
  1. PULMICORT FLEXHALER [Suspect]
     Active Substance: BUDESONIDE
     Indication: Asthma
     Route: 055

REACTIONS (10)
  - Pneumonitis [Unknown]
  - Asthma [Recovered/Resolved]
  - Bronchospasm [Recovered/Resolved]
  - Allergy to animal [Unknown]
  - Obsessive-compulsive disorder [Unknown]
  - Hypersensitivity [Unknown]
  - Treatment noncompliance [Unknown]
  - Product communication issue [Recovered/Resolved]
  - Incorrect dose administered by device [Unknown]
  - Device use issue [Unknown]
